FAERS Safety Report 5078379-X (Version None)
Quarter: 2006Q3

REPORT INFORMATION
  Report Type: 
  Country: None (occurrence: None)
  Receive Date: 20060811
  Receipt Date: 20060803
  Transmission Date: 20061208
  Serious: Yes (Death)
  Sender: FDA-Public Use
  Company Number: CH-GLAXOSMITHKLINE-B0433425A

PATIENT
  Age: 70 Year
  Sex: Female
  Weight: 115 kg

DRUGS (5)
  1. AUGMENTIN [Suspect]
     Indication: ERYSIPELAS
     Route: 048
     Dates: start: 20060603, end: 20060601
  2. GLUCOPHAGE [Suspect]
     Indication: DRUG USE FOR UNKNOWN INDICATION
     Dosage: 850MG TWICE PER DAY
     Route: 048
     Dates: end: 20060623
  3. CIPROFLOXACIN [Concomitant]
     Indication: DRUG USE FOR UNKNOWN INDICATION
     Route: 048
     Dates: start: 20060601, end: 20060623
  4. ZESTORETIC [Concomitant]
     Indication: DRUG USE FOR UNKNOWN INDICATION
     Dosage: 10MG PER DAY
     Route: 048
  5. MARCOUMAR [Concomitant]
     Indication: DRUG USE FOR UNKNOWN INDICATION
     Route: 048

REACTIONS (8)
  - DEHYDRATION [None]
  - DIARRHOEA [None]
  - DYSPNOEA [None]
  - HYPOTONIA [None]
  - INFECTIVE EXACERBATION OF CHRONIC OBSTRUCTIVE AIRWAYS DISEASE [None]
  - LACTIC ACIDOSIS [None]
  - RENAL FAILURE ACUTE [None]
  - TACHYPNOEA [None]
